FAERS Safety Report 11457339 (Version 1)
Quarter: 2015Q3

REPORT INFORMATION
  Report Type: Spontaneous
  Country: FR (occurrence: FR)
  Receive Date: 20150904
  Receipt Date: 20150904
  Transmission Date: 20151125
  Serious: Yes (Hospitalization)
  Sender: FDA-Public Use
  Company Number: FR-ACCORD-033444

PATIENT
  Age: 77 Year
  Sex: Male

DRUGS (4)
  1. HOSPIRA^S OXALIPLATIN [Suspect]
     Active Substance: OXALIPLATIN
     Indication: ADENOCARCINOMA OF COLON
     Dosage: 120 MG ONCE IN COURSE, 5 MG/ML
     Route: 042
     Dates: start: 20150311
  2. VECTIBIX [Suspect]
     Active Substance: PANITUMUMAB
     Indication: ADENOCARCINOMA OF COLON
     Dosage: 20 MG/ML
     Route: 042
     Dates: start: 20150323
  3. ACCORD^S FLUOROURACIL [Suspect]
     Active Substance: FLUOROURACIL
     Indication: ADENOCARCINOMA OF COLON
     Dosage: 3900 MG ONCE IN COURSE, 50 MG/ML
     Route: 042
     Dates: start: 20150311
  4. ACIDE FOLIQUE [Suspect]
     Active Substance: FOLIC ACID
     Indication: ADENOCARCINOMA OF COLON
     Dosage: 350 MG, ONCE IN COURSE
     Route: 042
     Dates: start: 20150311

REACTIONS (4)
  - Pancytopenia [Recovering/Resolving]
  - Decreased appetite [Recovering/Resolving]
  - Asthenia [Recovering/Resolving]
  - General physical health deterioration [Recovering/Resolving]

NARRATIVE: CASE EVENT DATE: 201504
